FAERS Safety Report 25691102 (Version 2)
Quarter: 2025Q3

REPORT INFORMATION
  Report Type: Spontaneous
  Country: US (occurrence: US)
  Receive Date: 20250818
  Receipt Date: 20250924
  Transmission Date: 20251020
  Serious: Yes (Other)
  Sender: SANOFI AVENTIS
  Company Number: US-SA-2025SA243050

PATIENT
  Age: 43 Year
  Sex: Male

DRUGS (1)
  1. ALTUVIIIO [Suspect]
     Active Substance: EFANESOCTOCOG ALFA
     Indication: Factor VIII deficiency
     Dosage: INFUSE 4300 UNITS (3870-4730) SLOW IV PUSH ONCE A WEEK AND EVERY 72 HOURS AS NEEDED FOR BLEEDS
     Route: 042
     Dates: start: 202408

REACTIONS (3)
  - Haemarthrosis [Recovered/Resolved]
  - Haemorrhage [Unknown]
  - Renal colic [Unknown]

NARRATIVE: CASE EVENT DATE: 20250806
